FAERS Safety Report 7909804-1 (Version None)
Quarter: 2011Q4

REPORT INFORMATION
  Report Type: 
  Country: None (occurrence: None)
  Receive Date: 20111111
  Receipt Date: 20111108
  Transmission Date: 20120403
  Serious: No
  Sender: FDA-Public Use
  Company Number: US-PFIZER INC-2011274981

PATIENT
  Sex: Male
  Weight: 104 kg

DRUGS (17)
  1. LIPITOR [Suspect]
     Indication: BLOOD CHOLESTEROL INCREASED
     Dosage: 10 MG, DAILY
     Route: 048
  2. VITAMIN D [Concomitant]
     Indication: MALABSORPTION
     Dosage: 1000 IU, DAILY
  3. OMEPRAZOLE [Concomitant]
     Indication: GASTROOESOPHAGEAL REFLUX DISEASE
     Dosage: 20 MG, 2X/DAY
  4. CETIRIZINE HYDROCHLORIDE [Concomitant]
     Indication: SKIN DISORDER
  5. GABAPENTIN [Concomitant]
     Indication: NEUROPATHY PERIPHERAL
     Dosage: 300 MG, DAILY
  6. LIPITOR [Suspect]
     Indication: CARDIOVASCULAR EVENT PROPHYLAXIS
  7. ASPIRIN [Concomitant]
     Indication: CARDIOVASCULAR EVENT PROPHYLAXIS
     Dosage: 81 MG, DAILY
  8. JANUVIA [Concomitant]
     Indication: TYPE 2 DIABETES MELLITUS
     Dosage: 50 MG, DAILY
  9. TESTOSTERONE [Concomitant]
     Indication: EMPTY SELLA SYNDROME
     Dosage: 200 MG, EVERY TWO WEEKS
  10. GENOTROPIN [Concomitant]
     Indication: EMPTY SELLA SYNDROME
     Dosage: 5 MG, DAILY
     Route: 058
  11. LEVOTHYROXINE [Concomitant]
     Indication: HYPOTHYROIDISM
     Dosage: 175 UG, DAILY
  12. LEVOTHYROXINE [Concomitant]
     Indication: EMPTY SELLA SYNDROME
  13. CETIRIZINE HYDROCHLORIDE [Concomitant]
     Indication: HYPERSENSITIVITY
     Dosage: 10 MG, DAILY
  14. CLONAZEPAM [Concomitant]
     Indication: PROPHYLAXIS
     Dosage: 0.5 MG, DAILY
  15. CALCIUM [Concomitant]
     Indication: MALABSORPTION
     Dosage: 1200 MG, DAILY
  16. IRON [Concomitant]
     Indication: ANAEMIA
     Dosage: 65 MG, DAILY
  17. LOSARTAN [Concomitant]
     Indication: PROPHYLAXIS
     Dosage: UNK, DAILY

REACTIONS (1)
  - WEIGHT DECREASED [None]
